FAERS Safety Report 9467997 (Version 1)
Quarter: 2013Q3

REPORT INFORMATION
  Report Type: Spontaneous
  Country: US (occurrence: US)
  Receive Date: 20130821
  Receipt Date: 20130821
  Transmission Date: 20140515
  Serious: No
  Sender: FDA-Public Use
  Company Number: US-BAYER-2013-099901

PATIENT
  Age: 60 Year
  Sex: Male

DRUGS (2)
  1. MAGNEVIST [Suspect]
     Indication: CARDIAC IMAGING PROCEDURE
     Dosage: 25 ML, ONCE
     Route: 042
     Dates: start: 20130816, end: 20130816
  2. MAGNEVIST [Suspect]
     Indication: AORTIC ANEURYSM

REACTIONS (4)
  - Eye pruritus [Recovered/Resolved]
  - Vomiting [Recovered/Resolved]
  - Flushing [Recovered/Resolved]
  - Nausea [Recovered/Resolved]
